FAERS Safety Report 13724847 (Version 1)
Quarter: 2017Q3

REPORT INFORMATION
  Report Type: Spontaneous
  Country: US (occurrence: US)
  Receive Date: 20170706
  Receipt Date: 20170706
  Transmission Date: 20171127
  Serious: No
  Sender: FDA-Public Use
  Company Number: US-AKORN PHARMACEUTICALS-2016AKN00405

PATIENT
  Sex: Male

DRUGS (1)
  1. ERYTHROMYCIN PLEDGETS USP 2% [Suspect]
     Active Substance: ERYTHROMYCIN
     Route: 061

REACTIONS (2)
  - Skin burning sensation [Unknown]
  - Product odour abnormal [None]
